FAERS Safety Report 21042426 (Version 1)
Quarter: 2022Q3

REPORT INFORMATION
  Report Type: Spontaneous
  Country: US (occurrence: None)
  Receive Date: 20220701
  Receipt Date: 20220701
  Transmission Date: 20221027
  Serious: Yes (Hospitalization)
  Sender: FDA-Public Use
  Company Number: None

PATIENT
  Age: 71 Year
  Sex: Male

DRUGS (1)
  1. ABIRATERONE [Suspect]
     Active Substance: ABIRATERONE
     Dosage: 1000MG DAILY ORAL
     Route: 048

REACTIONS (5)
  - Chromaturia [None]
  - Peripheral swelling [None]
  - Peripheral swelling [None]
  - Cystitis [None]
  - Therapy cessation [None]

NARRATIVE: CASE EVENT DATE: 20220701
